FAERS Safety Report 21964096 (Version 1)
Quarter: 2023Q1

REPORT INFORMATION
  Report Type: Spontaneous
  Country: US (occurrence: None)
  Receive Date: 20230206
  Receipt Date: 20230206
  Transmission Date: 20230418
  Serious: No
  Sender: FDA-Public Use
  Company Number: None

PATIENT
  Age: 51 Year
  Sex: Female

DRUGS (1)
  1. AJOVY [Suspect]
     Active Substance: FREMANEZUMAB-VFRM
     Indication: Migraine
     Dosage: OTHER FREQUENCY : Q 28 DAYS;?
     Route: 058
     Dates: start: 20221216

REACTIONS (5)
  - Migraine [None]
  - Paradoxical drug reaction [None]
  - Injection site erythema [None]
  - Injection site pruritus [None]
  - Urticaria [None]

NARRATIVE: CASE EVENT DATE: 20230113
